FAERS Safety Report 11832291 (Version 2)
Quarter: 2016Q1

REPORT INFORMATION
  Report Type: Spontaneous
  Country: US (occurrence: US)
  Receive Date: 20151214
  Receipt Date: 20160104
  Transmission Date: 20160525
  Serious: Yes (Death, Other)
  Sender: FDA-Public Use
  Company Number: US-PFIZER INC-2015436539

PATIENT
  Age: 22 Year
  Sex: Female

DRUGS (1)
  1. LIDOCAINE W/TETRACAINE [Suspect]
     Active Substance: LIDOCAINE\TETRACAINE
     Indication: ANAESTHESIA
     Dosage: 10 %, UNK
     Route: 061
     Dates: end: 20051228

REACTIONS (3)
  - Drug level increased [None]
  - Coma [Fatal]
  - Seizure [Unknown]
